FAERS Safety Report 13471369 (Version 1)
Quarter: 2017Q2

REPORT INFORMATION
  Report Type: Report from Study
  Country: BR (occurrence: BR)
  Receive Date: 20170424
  Receipt Date: 20170424
  Transmission Date: 20170830
  Serious: Yes (Death)
  Sender: FDA-Public Use
  Company Number: PHHY2017BR060348

PATIENT
  Sex: Female
  Weight: 57 kg

DRUGS (2)
  1. EXELON PATCH [Suspect]
     Active Substance: RIVASTIGMINE
     Indication: PARKINSON^S DISEASE
  2. EXELON PATCH [Suspect]
     Active Substance: RIVASTIGMINE
     Indication: SCOLIOSIS
     Dosage: 4.6 MG, QD PATCH 5 (CM2)
     Route: 062

REACTIONS (3)
  - Myocardial infarction [Fatal]
  - Product use in unapproved indication [Unknown]
  - Pain [Unknown]
